FAERS Safety Report 11744555 (Version 1)
Quarter: 2015Q4

REPORT INFORMATION
  Report Type: Spontaneous
  Country: TR (occurrence: TR)
  Receive Date: 20151116
  Receipt Date: 20151116
  Transmission Date: 20160304
  Serious: Yes (Hospitalization)
  Sender: FDA-Public Use
  Company Number: TR-BAUSCH-BL-2015-027115

PATIENT
  Age: 18 Year
  Sex: Male

DRUGS (1)
  1. MINOXIDIL 5 % - CUTANEOUS SOLUTION [Suspect]
     Active Substance: MINOXIDIL
     Indication: ANDROGENETIC ALOPECIA
     Route: 061

REACTIONS (1)
  - Dermatitis contact [Recovering/Resolving]
